FAERS Safety Report 9821004 (Version 2)
Quarter: 2014Q1

REPORT INFORMATION
  Report Type: Spontaneous
  Country: GB (occurrence: GB)
  Receive Date: 20140116
  Receipt Date: 20140330
  Transmission Date: 20141002
  Serious: Yes (Disabling, Other)
  Sender: FDA-Public Use
  Company Number: GB-BRISTOL-MYERS SQUIBB COMPANY-19988997

PATIENT
  Age: 79 Year
  Sex: Female
  Weight: 81 kg

DRUGS (10)
  1. APIXABAN [Suspect]
     Indication: ATRIAL FIBRILLATION
     Route: 048
     Dates: start: 20131106, end: 20131231
  2. ALPHADERM [Concomitant]
  3. OMEPRAZOLE [Concomitant]
  4. SODIUM HYALURONATE [Concomitant]
  5. BENDROFLUMETHIAZIDE [Concomitant]
  6. LERCANIDIPINE [Concomitant]
  7. SIMVASTATIN [Concomitant]
  8. ADCAL-D3 [Concomitant]
  9. ALENDRONIC ACID [Concomitant]
  10. BISOPROLOL [Concomitant]

REACTIONS (3)
  - Blister [Recovered/Resolved]
  - Blood blister [Recovered/Resolved]
  - Rash [Unknown]
